FAERS Safety Report 5795957-0 (Version None)
Quarter: 2008Q3

REPORT INFORMATION
  Report Type: 
  Country: None (occurrence: None)
  Receive Date: 20080701
  Receipt Date: 20080625
  Transmission Date: 20090109
  Serious: Yes (Other)
  Sender: FDA-Public Use
  Company Number: US-JNJFOC-20080606601

PATIENT
  Age: 84 Year
  Sex: Female
  Weight: 86.18 kg

DRUGS (7)
  1. TYLENOL (CAPLET) [Suspect]
     Route: 048
  2. TYLENOL (CAPLET) [Suspect]
     Indication: ARTHRITIS
     Route: 048
  3. TYLENOL PM [Concomitant]
     Dosage: AT NIGHT
  4. ASPIRIN [Concomitant]
     Indication: CARDIOVASCULAR EVENT PROPHYLAXIS
  5. DETROL LA [Concomitant]
     Indication: URINARY TRACT DISORDER
     Dosage: TIMES 1 1/2 YEARS
  6. DUETACT [Concomitant]
     Indication: DIABETES MELLITUS
     Dosage: 30 MG AND 4 MG TIME FOR 1.5 YEARS
  7. SYNTHROID [Concomitant]
     Indication: THYROID DISORDER

REACTIONS (1)
  - RECTAL HAEMORRHAGE [None]
